FAERS Safety Report 5396769-2 (Version None)
Quarter: 2007Q3

REPORT INFORMATION
  Report Type: 
  Country: None (occurrence: None)
  Receive Date: 20070725
  Receipt Date: 20070711
  Transmission Date: 20080115
  Serious: Yes (Hospitalization)
  Sender: FDA-Public Use
  Company Number: US-ELI_LILLY_AND_COMPANY-US200707002915

PATIENT
  Age: 13 Year
  Sex: Male
  Weight: 43.9 kg

DRUGS (4)
  1. SOMATROPIN [Suspect]
     Indication: GROWTH HORMONE DEFICIENCY
     Dosage: 2.2 MG, DAILY (1/D)
     Dates: start: 20050927, end: 20070711
  2. SOMATROPIN [Suspect]
     Dosage: 1.8 MG, DAILY (1/D)
     Dates: start: 20060519
  3. SYNTHROID [Concomitant]
     Indication: HYPOTHYROIDISM
     Dosage: 50 UG, DAILY (1/D)
     Dates: start: 20040122, end: 20070614
  4. SYNTHROID [Concomitant]
     Dosage: 62.5 UG, DAILY (1/D)
     Dates: start: 20070614

REACTIONS (1)
  - PANCYTOPENIA [None]
